FAERS Safety Report 10206376 (Version 3)
Quarter: 2014Q2

REPORT INFORMATION
  Report Type: Spontaneous
  Country: US (occurrence: None)
  Receive Date: 20140527
  Receipt Date: 20140613
  Transmission Date: 20141212
  Serious: Yes (Hospitalization, Other)
  Sender: FDA-Public Use
  Company Number: UNT-2014-000630

PATIENT
  Age: 72 Year
  Sex: Male
  Weight: 78.5 kg

DRUGS (3)
  1. TYVASO [Suspect]
     Indication: PULMONARY ARTERIAL HYPERTENSION
     Route: 055
     Dates: start: 20131217
  2. REVATIO (SILDENAFIL CITRATE) [Concomitant]
  3. FLOLAN (EPOPROSTENOL SODIUM) (1.5 MILLIGRAM, STERILE POWDER) (EPOPROSTENOL SODIUM) [Concomitant]

REACTIONS (6)
  - Dyspnoea [None]
  - Back pain [None]
  - Cardiac failure congestive [None]
  - Fluid retention [None]
  - Device issue [None]
  - Device malfunction [None]
